FAERS Safety Report 5147898-X (Version None)
Quarter: 2006Q4

REPORT INFORMATION
  Report Type: 
  Country: None (occurrence: None)
  Receive Date: 20061106
  Receipt Date: 20060714
  Transmission Date: 20070319
  Serious: Yes (Hospitalization, Other)
  Sender: FDA-Public Use
  Company Number: 2006090836

PATIENT
  Age: 50 Year
  Sex: Male
  Weight: 63.5036 kg

DRUGS (1)
  1. CELEBREX [Suspect]
     Dosage: 400 MG (200 MG, 2 IN 1 D)
     Dates: start: 20010801, end: 20030701

REACTIONS (3)
  - DEPRESSION [None]
  - HEART TRANSPLANT [None]
  - MYOCARDIAL INFARCTION [None]
